FAERS Safety Report 5389566-5 (Version None)
Quarter: 2007Q3

REPORT INFORMATION
  Report Type: 
  Country: None (occurrence: None)
  Receive Date: 20070717
  Receipt Date: 20070709
  Transmission Date: 20080115
  Serious: Yes (Other)
  Sender: FDA-Public Use
  Company Number: GR-ABBOTT-07P-066-0373888-00

PATIENT
  Sex: Female

DRUGS (1)
  1. REDUCTIL 15MG [Suspect]
     Indication: OBESITY
     Route: 048
     Dates: start: 20060101, end: 20060101

REACTIONS (2)
  - CHEST PAIN [None]
  - TACHYCARDIA [None]
